FAERS Safety Report 13664488 (Version 1)
Quarter: 2017Q2

REPORT INFORMATION
  Report Type: Spontaneous
  Country: US (occurrence: US)
  Receive Date: 20170618
  Receipt Date: 20170618
  Transmission Date: 20170830
  Serious: No
  Sender: FDA-Public Use
  Company Number: None

PATIENT
  Age: 63 Year
  Sex: Female
  Weight: 61.74 kg

DRUGS (6)
  1. BUMEX [Concomitant]
     Active Substance: BUMETANIDE
  2. COREG [Concomitant]
     Active Substance: CARVEDILOL
  3. PROTONIX [Concomitant]
     Active Substance: PANTOPRAZOLE SODIUM
  4. ASA [Concomitant]
     Active Substance: ASPIRIN
  5. SACUBITRIL-VALSARTAN 24-26 MG TABLET [Suspect]
     Active Substance: SACUBITRIL\VALSARTAN
     Indication: CARDIAC FAILURE CONGESTIVE
     Dosage: 24-26MG 1 PILL TWICE DAILY TWICE DAILY PILL FORM-ORAL
     Route: 048
     Dates: start: 20170526, end: 20170610
  6. VITAMIN D3 [Concomitant]
     Active Substance: CHOLECALCIFEROL

REACTIONS (7)
  - Pruritus [None]
  - Hypoaesthesia [None]
  - Skin disorder [None]
  - Rash [None]
  - Urticaria [None]
  - Peripheral swelling [None]
  - Upper-airway cough syndrome [None]

NARRATIVE: CASE EVENT DATE: 20170610
